FAERS Safety Report 5061917-0 (Version None)
Quarter: 2006Q3

REPORT INFORMATION
  Report Type: 
  Country: None (occurrence: None)
  Receive Date: 20060703
  Receipt Date: 20051214
  Transmission Date: 20061208
  Serious: No
  Sender: FDA-Public Use
  Company Number: 2005S1011940

PATIENT
  Age: 48 Year
  Sex: Male

DRUGS (6)
  1. CLOZAPINE [Suspect]
     Indication: MENTAL RETARDATION SEVERITY UNSPECIFIED
     Dosage: 550 MG;HS;ORAL
     Route: 048
     Dates: start: 20050301
  2. CLOZAPINE [Suspect]
     Indication: PSYCHOTIC DISORDER
     Dosage: 550 MG;HS;ORAL
     Route: 048
     Dates: start: 20050301
  3. LAMOTRIGINE [Concomitant]
  4. DOCUSATE SODIUM [Concomitant]
  5. VALPROATE SODIUM [Concomitant]
  6. PHENYLEPHRINE HYDROCHLORIDE/GUAIFENESIN [Concomitant]

REACTIONS (1)
  - GRANULOCYTOPENIA [None]
